FAERS Safety Report 5004395-X (Version None)
Quarter: 2006Q2

REPORT INFORMATION
  Report Type: 
  Country: None (occurrence: None)
  Receive Date: 20060511
  Receipt Date: 20060424
  Transmission Date: 20061013
  Serious: Yes (Other)
  Sender: FDA-Public Use
  Company Number: DSA_70896_2006

PATIENT
  Age: 75 Year
  Sex: Female
  Weight: 57.6068 kg

DRUGS (12)
  1. DARVOCET-N 100 [Suspect]
     Indication: ARTHRALGIA
     Dosage: 10 MG PO
     Route: 048
     Dates: start: 20051204
  2. LUNESTA [Suspect]
     Dosage: 2 MG QHS PO
     Route: 048
     Dates: start: 20051201, end: 20051205
  3. PREDNISONE TAB [Suspect]
     Indication: ARTHRALGIA
     Dosage: 20 MG QDAY PO
     Route: 048
     Dates: start: 20051203
  4. PREDNISONE TAB [Suspect]
     Indication: ARTHRALGIA
     Dosage: 3 MG QDAY PO
     Route: 048
     Dates: end: 20051203
  5. FOSAMAX [Concomitant]
  6. DITROPAN [Concomitant]
  7. LANOXIN [Concomitant]
  8. TOPRAL [Concomitant]
  9. ASPIRIN [Concomitant]
  10. CALCIUM GLUCONATE [Concomitant]
  11. MULTIVITAMIN [Concomitant]
  12. WELCHOL [Concomitant]

REACTIONS (3)
  - AMNESIA [None]
  - CONFUSIONAL STATE [None]
  - FEELING ABNORMAL [None]
